FAERS Safety Report 10018167 (Version 2)
Quarter: 2014Q1

REPORT INFORMATION
  Report Type: Spontaneous
  Country: US (occurrence: US)
  Receive Date: 20140318
  Receipt Date: 20140318
  Transmission Date: 20141002
  Serious: Yes (Hospitalization)
  Sender: FDA-Public Use
  Company Number: US-BRISTOL-MYERS SQUIBB COMPANY-19091792

PATIENT
  Age: 61 Year
  Sex: Male

DRUGS (9)
  1. ERBITUX [Suspect]
     Indication: HEAD AND NECK CANCER
     Dates: start: 201302
  2. BENADRYL [Concomitant]
  3. ALOXI [Concomitant]
  4. DEXAMETHASONE [Concomitant]
  5. ATROPINE [Concomitant]
  6. DOCETAXEL [Concomitant]
  7. CISPLATIN [Concomitant]
  8. 5FU [Concomitant]
  9. CARBOPLATIN [Concomitant]

REACTIONS (1)
  - Anaphylactic reaction [Unknown]
